FAERS Safety Report 5239191-1 (Version None)
Quarter: 2007Q1

REPORT INFORMATION
  Report Type: 
  Country: None (occurrence: None)
  Receive Date: 20061208
  Receipt Date: 20051025
  Transmission Date: 20070707
  Serious: Yes (Other)
  Sender: FDA-Public Use
  Company Number: 2005UW13793

PATIENT
  Age: 77 Year
  Sex: Female
  Weight: 59.4212 kg

DRUGS (8)
  1. CRESTOR [Suspect]
     Indication: HYPERLIPIDAEMIA
     Dosage: 5 MG PO
     Route: 048
     Dates: start: 20040901
  2. LOPRESSOR [Suspect]
  3. LOPRESSOR [Suspect]
     Dosage: 25 MG
  4. ASPIRIN [Concomitant]
  5. PATANOL [Concomitant]
  6. MOTRIN [Concomitant]
  7. COLACE [Concomitant]
  8. FOSAMAX [Concomitant]

REACTIONS (1)
  - BREAST ENLARGEMENT [None]
